FAERS Safety Report 4882035-8 (Version None)
Quarter: 2006Q1

REPORT INFORMATION
  Report Type: 
  Country: None (occurrence: None)
  Receive Date: 20060112
  Receipt Date: 20060103
  Transmission Date: 20060701
  Serious: Yes (Other)
  Sender: FDA-Public Use
  Company Number: 2006003924

PATIENT
  Age: 82 Year

DRUGS (1)
  1. DOXAZOSIN (DOXAZOSIN) [Suspect]
     Indication: HYPERTENSION
     Dosage: (1 MG), ORAL
     Route: 048

REACTIONS (2)
  - IRIS DISORDER [None]
  - PROCEDURAL COMPLICATION [None]
